FAERS Safety Report 7440947-5 (Version None)
Quarter: 2011Q2

REPORT INFORMATION
  Report Type: 
  Country: None (occurrence: None)
  Receive Date: 20110427
  Receipt Date: 20110414
  Transmission Date: 20111010
  Serious: Yes (Hospitalization)
  Sender: FDA-Public Use
  Company Number: PHHY2011FR31727

PATIENT
  Sex: Female

DRUGS (18)
  1. COZAAR [Suspect]
     Dosage: 50 MG, DAILY
     Dates: start: 20070802, end: 20110313
  2. LEVOTHYROX [Concomitant]
  3. STABLON [Concomitant]
  4. LEXOMIL [Concomitant]
  5. FORLAX [Concomitant]
  6. ESIDRIX [Suspect]
     Dosage: 12.5 MG, UNK
     Dates: start: 20070802, end: 20110213
  7. VOLTARENE LP [Suspect]
     Dosage: 100 MG, QD
     Dates: start: 20110208, end: 20110213
  8. GABAPENTIN [Concomitant]
  9. LASIX [Suspect]
     Dosage: 40 MG, DAILY
     Dates: start: 20071213, end: 20110213
  10. PARIET [Concomitant]
  11. ALLOPURINOL [Concomitant]
  12. KARDEGIC [Concomitant]
  13. EUPRESSYL [Concomitant]
  14. TAHOR [Concomitant]
  15. BISOPROLOL [Concomitant]
  16. NOCTRAN [Concomitant]
  17. CALCIDOSE [Concomitant]
  18. ACETAMINOPHEN AND TRAMADOL HCL [Concomitant]

REACTIONS (6)
  - MALAISE [None]
  - BACTERIURIA [None]
  - LOSS OF CONSCIOUSNESS [None]
  - INFLAMMATION [None]
  - GENERAL PHYSICAL HEALTH DETERIORATION [None]
  - RENAL FAILURE ACUTE [None]
